FAERS Safety Report 20958197 (Version 2)
Quarter: 2024Q3

REPORT INFORMATION
  Report Type: Spontaneous
  Country: US (occurrence: US)
  Receive Date: 20220614
  Receipt Date: 20240712
  Transmission Date: 20241017
  Serious: No
  Sender: PIERRE FABRE MEDICAMENT
  Company Number: US-PFM-2022-03517

PATIENT
  Age: 5 Month
  Sex: Male

DRUGS (5)
  1. PROPRANOLOL [Suspect]
     Active Substance: PROPRANOLOL HYDROCHLORIDE
     Indication: Tachycardia
     Dosage: 10 MG EVERY 8 H
     Route: 048
  2. PROPRANOLOL [Suspect]
     Active Substance: PROPRANOLOL HYDROCHLORIDE
     Indication: Irritability
  3. PROPRANOLOL [Suspect]
     Active Substance: PROPRANOLOL HYDROCHLORIDE
     Indication: Hypertension
  4. PROPRANOLOL [Suspect]
     Active Substance: PROPRANOLOL HYDROCHLORIDE
     Indication: Off label use
  5. HYDROCORTISONE [Concomitant]
     Active Substance: HYDROCORTISONE\HYDROCORTISONE ACETATE
     Indication: Product used for unknown indication
     Dosage: 1.25 MG,TWICE DAILY
     Route: 048

REACTIONS (3)
  - Product use in unapproved indication [Unknown]
  - Off label use [Unknown]
  - Inappropriate schedule of product administration [Unknown]
